FAERS Safety Report 8123370-X (Version None)
Quarter: 2012Q1

REPORT INFORMATION
  Report Type: 
  Country: None (occurrence: None)
  Receive Date: 20120208
  Receipt Date: 20120203
  Transmission Date: 20120608
  Serious: No
  Sender: FDA-Public Use
  Company Number: US-PFIZER INC-2012030912

PATIENT
  Sex: Female
  Weight: 77.098 kg

DRUGS (3)
  1. LANTUS [Concomitant]
     Indication: DIABETES MELLITUS
     Dosage: 50 IU, DAILY
  2. LIPITOR [Suspect]
     Indication: BLOOD CHOLESTEROL INCREASED
     Dosage: 20 MG, DAILY
     Route: 048
     Dates: start: 20110301, end: 20110101
  3. NOVOLIN R [Concomitant]
     Indication: DIABETES MELLITUS
     Dosage: 15 IU, DAILY

REACTIONS (1)
  - MYALGIA [None]
